FAERS Safety Report 10241456 (Version 1)
Quarter: 2014Q2

REPORT INFORMATION
  Report Type: Spontaneous
  Country: GB (occurrence: GB)
  Receive Date: 20140617
  Receipt Date: 20140617
  Transmission Date: 20141212
  Serious: Yes (Other)
  Sender: FDA-Public Use
  Company Number: GB-WATSON-2014-12609

PATIENT
  Age: 67 Year
  Sex: Female
  Weight: 64 kg

DRUGS (1)
  1. DICLOFENAC-MISOPROSTOL (UNKNOWN) [Suspect]
     Indication: ARTHRALGIA
     Dosage: 50 MG, UNKNOWN
     Route: 048
     Dates: end: 201404

REACTIONS (1)
  - Vitreous haemorrhage [Recovering/Resolving]
